FAERS Safety Report 6452914-9 (Version None)
Quarter: 2009Q4

REPORT INFORMATION
  Report Type: 
  Country: None (occurrence: None)
  Receive Date: 20091124
  Receipt Date: 20090316
  Transmission Date: 20100525
  Serious: No
  Sender: FDA-Public Use
  Company Number: US-ABBOTT-09P-163-0500149-00

PATIENT
  Sex: Female
  Weight: 143.01 kg

DRUGS (16)
  1. TRICOR [Suspect]
     Indication: BLOOD CHOLESTEROL INCREASED
     Route: 048
     Dates: start: 20060101, end: 20060101
  2. TRICOR [Suspect]
     Indication: LOW DENSITY LIPOPROTEIN INCREASED
  3. TRICOR [Suspect]
     Indication: BLOOD TRIGLYCERIDES INCREASED
  4. CRESTOR [Suspect]
     Indication: BLOOD CHOLESTEROL INCREASED
     Route: 048
     Dates: start: 20060101, end: 20081201
  5. CRESTOR [Suspect]
     Indication: BLOOD TRIGLYCERIDES INCREASED
  6. CRESTOR [Suspect]
     Indication: LOW DENSITY LIPOPROTEIN INCREASED
  7. NEURONTIN [Concomitant]
     Indication: NEUROPATHY PERIPHERAL
     Route: 048
  8. PROZAC [Concomitant]
     Indication: DEPRESSION
     Route: 048
  9. GABITRIL [Concomitant]
     Indication: DEPRESSION
     Route: 048
  10. KLONOPIN [Concomitant]
     Indication: ANXIETY
     Route: 048
  11. LORTAB [Concomitant]
     Indication: PAIN
     Route: 048
  12. ADVAIR DISKUS 100/50 [Concomitant]
     Indication: CHRONIC OBSTRUCTIVE PULMONARY DISEASE
     Dosage: 500/50 MG
     Route: 055
  13. ALBUTEROL [Concomitant]
     Indication: CHRONIC OBSTRUCTIVE PULMONARY DISEASE
     Dosage: 2 PUFFS
     Route: 055
  14. SOMA [Concomitant]
     Indication: PAIN
     Route: 048
  15. VITAMIN D [Concomitant]
     Indication: HYPOVITAMINOSIS
     Route: 048
  16. ASPIRIN [Concomitant]
     Indication: CARDIOVASCULAR EVENT PROPHYLAXIS
     Route: 048

REACTIONS (2)
  - ARTHRALGIA [None]
  - JOINT SWELLING [None]
